FAERS Safety Report 7785177-2 (Version None)
Quarter: 2011Q3

REPORT INFORMATION
  Report Type: 
  Country: None (occurrence: None)
  Receive Date: 20110929
  Receipt Date: 20110922
  Transmission Date: 20111222
  Serious: No
  Sender: FDA-Public Use
  Company Number: US-BIOGENIDEC-2011BI036665

PATIENT
  Age: 50 Year
  Sex: Female

DRUGS (1)
  1. TYSABRI [Suspect]
     Indication: MULTIPLE SCLEROSIS
     Route: 042
     Dates: start: 20110322

REACTIONS (7)
  - FATIGUE [None]
  - MUSCLE STRAIN [None]
  - BRONCHITIS [None]
  - CYSTITIS [None]
  - ASTHENIA [None]
  - MOBILITY DECREASED [None]
  - NECK PAIN [None]
